FAERS Safety Report 15458274 (Version 1)
Quarter: 2018Q3

REPORT INFORMATION
  Report Type: Spontaneous
  Country: US (occurrence: US)
  Receive Date: 20180929
  Receipt Date: 20180929
  Transmission Date: 20181010
  Serious: Yes (Other)
  Sender: FDA-Public Use
  Company Number: None

PATIENT
  Age: 47 Year
  Sex: Female

DRUGS (5)
  1. NOVOLOG [Concomitant]
     Active Substance: INSULIN ASPART
  2. RAMIPRIL. [Concomitant]
     Active Substance: RAMIPRIL
  3. ACTEMRA [Suspect]
     Active Substance: TOCILIZUMAB
     Indication: RHEUMATOID ARTHRITIS
     Dosage: ?          OTHER FREQUENCY:ONCE WEEKLY;?
     Route: 058
     Dates: start: 20180120
  4. MULTIGEN [Concomitant]
  5. BASAGLAR [Concomitant]
     Active Substance: INSULIN GLARGINE

REACTIONS (2)
  - Neutropenia [None]
  - Therapy cessation [None]

NARRATIVE: CASE EVENT DATE: 20180928
